FAERS Safety Report 18241788 (Version 1)
Quarter: 2020Q3

REPORT INFORMATION
  Report Type: Spontaneous
  Country: ES (occurrence: ES)
  Receive Date: 20200908
  Receipt Date: 20200908
  Transmission Date: 20201103
  Serious: Yes (Hospitalization)
  Sender: FDA-Public Use
  Company Number: ES-VIRTUS PHARMACEUTICALS, LLC-2020VTS00063

PATIENT
  Age: 56 Year
  Sex: Male

DRUGS (9)
  1. METOCLOPRAMIDE. [Concomitant]
     Active Substance: METOCLOPRAMIDE
     Route: 065
  2. NALOXONE?OXYCODONE [Suspect]
     Active Substance: NALOXONE HYDROCHLORIDE\OXYCODONE HYDROCHLORIDE
     Indication: PANCREATIC NEUROENDOCRINE TUMOUR METASTATIC
     Dosage: 60/30 MG (40/20 MG PLUS 20/10 MG), 2X/DAY
     Route: 065
  3. OXYCODONE [Concomitant]
     Active Substance: OXYCODONE
     Dosage: 40 MG, 2X/DAY
     Route: 065
  4. FENTANYL. [Concomitant]
     Active Substance: FENTANYL
  5. OMEPRAZOLE. [Concomitant]
     Active Substance: OMEPRAZOLE
     Route: 065
  6. UNSPECIFIED INSULIN [Concomitant]
     Active Substance: INSULIN NOS
     Route: 065
  7. NALOXONE?OXYCODONE [Suspect]
     Active Substance: NALOXONE HYDROCHLORIDE\OXYCODONE HYDROCHLORIDE
     Indication: CONSTIPATION
  8. NALOXEGOL [Suspect]
     Active Substance: NALOXEGOL
     Indication: CONSTIPATION
     Route: 065
  9. ACETAMINOPHEN. [Concomitant]
     Active Substance: ACETAMINOPHEN
     Route: 065

REACTIONS (2)
  - Drug withdrawal syndrome [Recovered/Resolved]
  - Drug interaction [Recovered/Resolved]
